FAERS Safety Report 24726284 (Version 1)
Quarter: 2024Q4

REPORT INFORMATION
  Report Type: Spontaneous
  Country: JP (occurrence: JP)
  Receive Date: 20241212
  Receipt Date: 20241212
  Transmission Date: 20250114
  Serious: Yes (Hospitalization)
  Sender: BIOCODEX
  Company Number: JP-BIOCODEX2-2024001795

PATIENT

DRUGS (2)
  1. DIACOMIT [Suspect]
     Active Substance: STIRIPENTOL
     Indication: Product used for unknown indication
     Route: 048
  2. DIACOMIT [Suspect]
     Active Substance: STIRIPENTOL
     Indication: Product used for unknown indication
     Route: 050

REACTIONS (4)
  - Hospitalisation [Unknown]
  - Dysphagia [Unknown]
  - Off label use [Unknown]
  - Wrong technique in product usage process [Unknown]
